FAERS Safety Report 7151474 (Version 10)
Quarter: 2014Q1

REPORT INFORMATION
  Report Type: Spontaneous
  Country: US (occurrence: US)
  Receive Date: 20091016
  Receipt Date: 20140219
  Transmission Date: 20141002
  Serious: Yes (Death, Hospitalization, Other)
  Sender: FDA-Public Use
  Company Number: PHEH2009US13622

PATIENT
  Age: 54 Year
  Sex: Female
  Weight: 68.03 kg

DRUGS (24)
  1. ZOMETA [Suspect]
     Dosage: UNK UKN, EVERY 4 WEEKS
     Route: 042
     Dates: start: 200604, end: 200706
  2. ABRAXANE [Suspect]
     Dosage: 170 MG, UNK
  3. WELLBUTRIN                         /00700502/ [Concomitant]
  4. HUMIRA [Concomitant]
  5. FEMARA [Concomitant]
  6. XANAX [Concomitant]
  7. RESTORIL [Concomitant]
  8. RADIATION [Concomitant]
  9. CHEMOTHERAPEUTICS [Concomitant]
  10. DECADRON                                /CAN/ [Concomitant]
  11. COMPAZINE [Concomitant]
  12. NEUPOGEN [Concomitant]
  13. ACYCLOVIR [Concomitant]
  14. COUMADIN ^BOOTS^ [Concomitant]
  15. ATIVAN [Concomitant]
     Route: 042
  16. TAXOTERE [Concomitant]
     Dosage: 120 MG, UNK
  17. AROMASIN [Concomitant]
     Dosage: 1 DF, QD
     Route: 048
  18. PERCOCET [Concomitant]
  19. OXYCODONE [Concomitant]
  20. ZOFRAN [Concomitant]
  21. FENTANYL [Concomitant]
  22. FASLODEX [Concomitant]
  23. NEULASTA [Concomitant]
  24. LIBRAX [Concomitant]

REACTIONS (86)
  - Diarrhoea [Unknown]
  - Bacterial disease carrier [Unknown]
  - Abscess jaw [Unknown]
  - Gingival bleeding [Unknown]
  - Cardiac arrest [Unknown]
  - Cardiac failure congestive [Unknown]
  - Osteoradionecrosis [Unknown]
  - Ulcer [Unknown]
  - Gingival pain [Unknown]
  - Gingival swelling [Unknown]
  - Hypoaesthesia oral [Unknown]
  - Bone deformity [Unknown]
  - Gingivitis [Unknown]
  - Mitral valve incompetence [Unknown]
  - Tricuspid valve incompetence [Unknown]
  - Pericardial effusion [Unknown]
  - Acute respiratory failure [Unknown]
  - Coma [Unknown]
  - Pneumonia [Unknown]
  - Escherichia infection [Unknown]
  - Arteriosclerosis coronary artery [Unknown]
  - Tobacco abuse [Unknown]
  - Hypoxic-ischaemic encephalopathy [Unknown]
  - Lung infiltration [Unknown]
  - Pneumonitis [Unknown]
  - Sinus tachycardia [Unknown]
  - Ventricular fibrillation [Unknown]
  - Abdominal distension [Unknown]
  - Nausea [Unknown]
  - Vomiting [Unknown]
  - Death [Fatal]
  - Haemorrhoidal haemorrhage [Unknown]
  - Vulvovaginal mycotic infection [Unknown]
  - Immunosuppression [Unknown]
  - Osteonecrosis of jaw [Unknown]
  - Injury [Unknown]
  - Disability [Unknown]
  - Pain [Unknown]
  - Anxiety [Unknown]
  - Pain in jaw [Unknown]
  - Anhedonia [Unknown]
  - Oral disorder [Unknown]
  - Infection [Unknown]
  - Bone loss [Unknown]
  - Herpes simplex [Unknown]
  - Gingival abscess [Unknown]
  - Agranulocytosis [Unknown]
  - Neutropenia [Unknown]
  - Pyrexia [Recovered/Resolved]
  - Chills [Unknown]
  - Leukopenia [Recovered/Resolved]
  - Asthenia [Unknown]
  - Insomnia [Unknown]
  - Back pain [Unknown]
  - Fatigue [Unknown]
  - Vocal cord polyp [Unknown]
  - Dysphonia [Unknown]
  - Gastrooesophageal reflux disease [Unknown]
  - Abdominal discomfort [Recovered/Resolved]
  - Dysphagia [Unknown]
  - Dyspepsia [Unknown]
  - Myalgia [Unknown]
  - Nasal congestion [Unknown]
  - Neck pain [Unknown]
  - Hepatic lesion [Unknown]
  - Bone lesion [Unknown]
  - Renal cyst [Unknown]
  - Decreased appetite [Unknown]
  - Dysgeusia [Unknown]
  - Abdominal pain [Unknown]
  - Rash [Recovered/Resolved]
  - Ocular icterus [Unknown]
  - Jaundice [Unknown]
  - Coronary artery disease [Unknown]
  - Left ventricular dysfunction [Unknown]
  - Cardiomyopathy [Unknown]
  - Cardiac failure [Unknown]
  - Loss of consciousness [Unknown]
  - Cyst [Unknown]
  - Osteomyelitis [Unknown]
  - Pleural effusion [Unknown]
  - Spinal osteoarthritis [Unknown]
  - Pharyngeal cyst [Unknown]
  - Rectal haemorrhage [Unknown]
  - Haemorrhoids [Unknown]
  - Constipation [Unknown]
